FAERS Safety Report 9168656 (Version 1)
Quarter: 2013Q1

REPORT INFORMATION
  Report Type: Spontaneous
  Country: DE (occurrence: None)
  Receive Date: 20130305
  Receipt Date: 20130305
  Transmission Date: 20140127
  Serious: Yes (Hospitalization)
  Sender: FDA-Public Use
  Company Number: ACO_34617_2013

PATIENT
  Age: 75 Year
  Sex: Female

DRUGS (1)
  1. FAMPYRA [Suspect]
     Indication: MULTIPLE SCLEROSIS
     Route: 048
     Dates: start: 20120701

REACTIONS (5)
  - Muscular weakness [None]
  - Gait disturbance [None]
  - Urinary tract infection [None]
  - Urinary incontinence [None]
  - Cystitis [None]
